FAERS Safety Report 25162486 (Version 1)
Quarter: 2025Q2

REPORT INFORMATION
  Report Type: Other
  Country: US (occurrence: US)
  Receive Date: 20250404
  Receipt Date: 20250404
  Transmission Date: 20250716
  Serious: Yes (Hospitalization)
  Sender: B BRAUN
  Company Number: US-B.Braun Medical Inc.-2174266

PATIENT
  Age: 63 Year
  Sex: Male
  Weight: 107 kg

DRUGS (51)
  1. MEROPENEM [Suspect]
     Active Substance: MEROPENEM
     Indication: Septic shock
  2. VANCOMYCIN [Suspect]
     Active Substance: VANCOMYCIN
  3. VASOPRESSIN [Concomitant]
     Active Substance: VASOPRESSIN
  4. MONTELUKAST [Concomitant]
     Active Substance: MONTELUKAST
  5. HEPARIN [Concomitant]
     Active Substance: HEPARIN SODIUM
  6. MIDAZOLAM [Concomitant]
     Active Substance: MIDAZOLAM
  7. GABAPENTIN [Concomitant]
     Active Substance: GABAPENTIN
  8. TIOTROPIUM [Concomitant]
     Active Substance: TIOTROPIUM
  9. METRONIDAZOLE [Concomitant]
     Active Substance: METRONIDAZOLE
  10. FUROSEMIDE [Concomitant]
     Active Substance: FUROSEMIDE
  11. TEMAZEPAM [Concomitant]
     Active Substance: TEMAZEPAM
  12. METHYLPREDNISOLONE [Concomitant]
     Active Substance: METHYLPREDNISOLONE
  13. FLUTICASONE, SALMETEROL [Concomitant]
  14. TAMSULOSIN [Concomitant]
     Active Substance: TAMSULOSIN
  15. FLUTICASONE, SALMETEROL [Concomitant]
  16. SODIUM ZIRCONIUM CYCLOSILICATE [Concomitant]
     Active Substance: SODIUM ZIRCONIUM CYCLOSILICATE
  17. MELATONIN [Concomitant]
     Active Substance: MELATONIN
  18. FLUDROCORTISONE [Concomitant]
     Active Substance: FLUDROCORTISONE
  19. SODIUM CHLORIDE [Concomitant]
     Active Substance: SODIUM CHLORIDE
  20. MAGNESIUM SULFATE [Concomitant]
     Active Substance: MAGNESIUM SULFATE
  21. FENTANYL [Concomitant]
     Active Substance: FENTANYL
  22. LORATADINE [Concomitant]
     Active Substance: LORATADINE
  23. EMPAGLIFLOZIN [Concomitant]
     Active Substance: EMPAGLIFLOZIN
  24. SENNA [Concomitant]
     Active Substance: SENNOSIDES
  25. LIDOCAINE\PRILOCAINE [Concomitant]
     Active Substance: LIDOCAINE\PRILOCAINE
  26. DULOXETINE [Concomitant]
     Active Substance: DULOXETINE
  27. RIVAROXABAN [Concomitant]
     Active Substance: RIVAROXABAN
  28. LIDOCAINE [Concomitant]
     Active Substance: LIDOCAINE
  29. DEXTROSE [Concomitant]
     Active Substance: DEXTROSE MONOHYDRATE
  30. QUETIAPINE [Concomitant]
     Active Substance: QUETIAPINE
  31. LACTATED RINGERS SOLUTION [Concomitant]
     Active Substance: CALCIUM CHLORIDE\POTASSIUM CHLORIDE\SODIUM CHLORIDE\SODIUM LACTATE
  32. DEXMEDETOMIDINE [Concomitant]
     Active Substance: DEXMEDETOMIDINE
  33. PROPRANOLOL [Concomitant]
     Active Substance: PROPRANOLOL HYDROCHLORIDE
  34. KETAMINE [Concomitant]
     Active Substance: KETAMINE
  35. CEFEPIME [Concomitant]
     Active Substance: CEFEPIME HYDROCHLORIDE
  36. PROPOFOL [Concomitant]
     Active Substance: PROPOFOL
  37. IPRATROPIUM [Concomitant]
     Active Substance: IPRATROPIUM
  38. CALCIUM GLUCONATE [Concomitant]
     Active Substance: CALCIUM GLUCONATE
  39. PREDNISONE [Concomitant]
     Active Substance: PREDNISONE
  40. INSULIN NOS [Concomitant]
     Active Substance: INSULIN NOS
  41. AZITHROMYCIN [Concomitant]
     Active Substance: AZITHROMYCIN
  42. POLYETHYLENE GLYCOL [Concomitant]
     Active Substance: POLYETHYLENE GLYCOL
  43. INSULIN GLARGINE [Concomitant]
     Active Substance: INSULIN GLARGINE
  44. ATORVASTATIN [Concomitant]
     Active Substance: ATORVASTATIN
  45. PANTOPRAZOLE [Concomitant]
     Active Substance: PANTOPRAZOLE
  46. INSULIN ASPART [Concomitant]
     Active Substance: INSULIN ASPART
  47. ALTEPLASE [Concomitant]
     Active Substance: ALTEPLASE
  48. NOREPINEPHRINE [Concomitant]
     Active Substance: NOREPINEPHRINE
  49. HYDROXYZINE [Concomitant]
     Active Substance: HYDROXYZINE HYDROCHLORIDE
  50. ALBUTEROL [Concomitant]
     Active Substance: ALBUTEROL
  51. SODIUM BICARBONATE [Concomitant]
     Active Substance: SODIUM BICARBONATE

REACTIONS (1)
  - Methaemoglobinaemia [Recovering/Resolving]
